FAERS Safety Report 9036852 (Version 1)
Quarter: 2013Q1

REPORT INFORMATION
  Report Type: Spontaneous
  Country: US (occurrence: None)
  Receive Date: 20130118
  Receipt Date: 20130118
  Transmission Date: 20140127
  Serious: Yes (Other)
  Sender: FDA-Public Use
  Company Number: None

PATIENT
  Age: 33 Year
  Sex: Female
  Weight: 45.36 kg

DRUGS (1)
  1. MONTELUKAST [Suspect]
     Indication: ASTHMA
     Route: 048
     Dates: start: 20130101, end: 20130107

REACTIONS (7)
  - Nightmare [None]
  - Fear [None]
  - Feeling abnormal [None]
  - Suicidal ideation [None]
  - Thinking abnormal [None]
  - Tinnitus [None]
  - Palpitations [None]
